FAERS Safety Report 24798631 (Version 1)
Quarter: 2025Q1

REPORT INFORMATION
  Report Type: Spontaneous
  Country: JP (occurrence: JP)
  Receive Date: 20250102
  Receipt Date: 20250102
  Transmission Date: 20250409
  Serious: Yes (Hospitalization, Other)
  Sender: ALKEM
  Company Number: None

PATIENT
  Age: 4 Year
  Sex: Male

DRUGS (14)
  1. TACROLIMUS [Interacting]
     Active Substance: TACROLIMUS
     Indication: Prophylaxis against graft versus host disease
     Route: 065
  2. BUSULFAN [Suspect]
     Active Substance: BUSULFAN
     Indication: Prophylaxis against graft versus host disease
     Dosage: 4.8 MILLIGRAM/KILOGRAM, QD (FROM DAYS MINUS 9 TO MINUS 6)
     Route: 065
  3. CYCLOPHOSPHAMIDE [Suspect]
     Active Substance: CYCLOPHOSPHAMIDE
     Indication: Immunosuppressant drug therapy
     Dosage: 60 MILLIGRAM/KILOGRAM, QD (FROM DAYS MINUS 4 TO MINUS 3)
     Route: 065
  4. METHOTREXATE [Suspect]
     Active Substance: METHOTREXATE
     Indication: Prophylaxis against graft versus host disease
     Route: 065
  5. METHOTREXATE [Suspect]
     Active Substance: METHOTREXATE
     Route: 065
  6. MELPHALAN [Suspect]
     Active Substance: MELPHALAN
     Indication: Prophylaxis against graft versus host disease
     Dosage: 140 MILLIGRAM/SQ. METER, QD
     Route: 065
  7. VORICONAZOLE [Interacting]
     Active Substance: VORICONAZOLE
     Indication: Aspergillus infection
     Dosage: 9.3 MILLIGRAM/KILOGRAM, BID
     Route: 042
  8. VORICONAZOLE [Interacting]
     Active Substance: VORICONAZOLE
     Indication: Renal abscess
     Dosage: 8 MILLIGRAM/KILOGRAM, BID
     Route: 042
  9. VORICONAZOLE [Interacting]
     Active Substance: VORICONAZOLE
     Indication: Bronchopulmonary aspergillosis
     Dosage: 27 MILLIGRAM/KILOGRAM, QD
     Route: 048
  10. VORICONAZOLE [Interacting]
     Active Substance: VORICONAZOLE
     Indication: Cerebral aspergillosis
  11. ACYCLOVIR [Concomitant]
     Active Substance: ACYCLOVIR
     Indication: Herpes virus infection
     Dosage: 5 MILLIGRAM/KILOGRAM, QD, (EVERY 1 DAY)
     Route: 065
  12. ACYCLOVIR [Concomitant]
     Active Substance: ACYCLOVIR
     Indication: Infection prophylaxis
  13. DALTEPARIN SODIUM [Concomitant]
     Active Substance: DALTEPARIN SODIUM
     Indication: Venoocclusive liver disease
     Dosage: 75 INTERNATIONAL UNIT/KILOGRAM, QD, (EVERY 1 DAY)
     Route: 065
  14. DALTEPARIN SODIUM [Concomitant]
     Active Substance: DALTEPARIN SODIUM
     Indication: Prophylaxis

REACTIONS (5)
  - Drug level decreased [Unknown]
  - Cerebral aspergillosis [Recovering/Resolving]
  - Drug interaction [Unknown]
  - Lung abscess [Recovered/Resolved]
  - Brain abscess [Recovered/Resolved]

NARRATIVE: CASE EVENT DATE: 20230101
